FAERS Safety Report 7634678-6 (Version None)
Quarter: 2011Q3

REPORT INFORMATION
  Report Type: 
  Country: None (occurrence: None)
  Receive Date: 20110725
  Receipt Date: 20110713
  Transmission Date: 20111222
  Serious: Yes (Hospitalization)
  Sender: FDA-Public Use
  Company Number: JP-AMGEN-JPNSP2011034409

PATIENT
  Age: 73 Year
  Sex: Female
  Weight: 69 kg

DRUGS (26)
  1. SEVELAMER HYDROCHLORIDE [Concomitant]
     Indication: HYPERPHOSPHATAEMIA
     Dosage: UNCERTAINTY
     Route: 048
  2. MUCOSOLVAN [Concomitant]
     Dosage: UNCERTAINTY
     Route: 048
  3. THEO-DUR [Concomitant]
     Route: 048
  4. OMEPRAZOLE [Concomitant]
     Route: 048
  5. MUCOSOLVAN [Concomitant]
     Indication: ASTHMA
     Dosage: UNCERTAINTY
     Route: 048
  6. PROMAC [Concomitant]
     Indication: GASTRIC ULCER
     Dosage: UNCERTAINTY
     Route: 048
  7. PROMAC [Concomitant]
     Route: 048
  8. PLETAL [Concomitant]
     Route: 048
     Dates: start: 20110325
  9. NESPO [Concomitant]
     Indication: NEPHROGENIC ANAEMIA
     Route: 040
     Dates: start: 20110218
  10. THEO-DUR [Concomitant]
     Indication: ASTHMA
     Dosage: UNCERTAINTY
     Route: 048
  11. METHYCOBAL [Concomitant]
     Dosage: UNCERTAINTY
     Route: 048
  12. ASPIRIN [Concomitant]
     Dosage: UNCERTAINTY
     Route: 048
  13. METHYCOBAL [Concomitant]
     Indication: NEUROPATHY PERIPHERAL
     Dosage: UNCERTAINTY
     Route: 048
  14. SENNARIDE [Concomitant]
     Indication: CONSTIPATION
     Dosage: UNCERTAINTY
     Route: 048
  15. CINACALCET HYDROCHLORIDE [Suspect]
     Indication: HYPERPARATHYROIDISM SECONDARY
     Route: 048
     Dates: start: 20110117, end: 20110617
  16. SEVELAMER HYDROCHLORIDE [Concomitant]
     Route: 048
     Dates: start: 20110527
  17. SELBEX [Concomitant]
     Indication: GASTRITIS
     Dosage: UNCERTAINTY
     Route: 048
  18. ASPIRIN [Concomitant]
     Indication: ARTERIOSCLEROSIS OBLITERANS
     Dosage: UNCERTAINTY
     Route: 048
  19. NEUROTROPIN [Concomitant]
     Indication: PRURITUS
     Route: 040
  20. ALOSENN [Concomitant]
     Indication: CONSTIPATION
     Route: 048
  21. SELBEX [Concomitant]
     Route: 048
  22. REMITCH [Concomitant]
     Indication: PRURITUS
     Dosage: UNCERTAINTY
     Route: 048
  23. REMITCH [Concomitant]
     Dosage: UNCERTAINTY
     Route: 048
     Dates: start: 20091228
  24. NEO-MINOPHAGEN C [Concomitant]
     Indication: PRURITUS
     Route: 040
  25. OMEPRAZOLE [Concomitant]
     Indication: GASTROOESOPHAGEAL REFLUX DISEASE
     Dosage: UNCERTAINTY
     Route: 048
  26. PLETAL [Concomitant]
     Indication: ARTERIAL OCCLUSIVE DISEASE
     Dosage: UNCERTAINTY
     Route: 048

REACTIONS (2)
  - TORSADE DE POINTES [None]
  - ELECTROCARDIOGRAM QT PROLONGED [None]
